FAERS Safety Report 25274674 (Version 3)
Quarter: 2025Q2

REPORT INFORMATION
  Report Type: Spontaneous
  Country: BR (occurrence: BR)
  Receive Date: 20250506
  Receipt Date: 20250612
  Transmission Date: 20250716
  Serious: No
  Sender: PFIZER
  Company Number: BR-PFIZER INC-202500090363

PATIENT

DRUGS (1)
  1. SOMATROGON [Suspect]
     Active Substance: SOMATROGON

REACTIONS (1)
  - Device defective [Unknown]
